FAERS Safety Report 16947288 (Version 2)
Quarter: 2020Q1

REPORT INFORMATION
  Report Type: Spontaneous
  Country: US (occurrence: US)
  Receive Date: 20191022
  Receipt Date: 20200207
  Transmission Date: 20200409
  Serious: No
  Sender: FDA-Public Use
  Company Number: US-AKCEA THERAPEUTICS-2019IS001740

PATIENT

DRUGS (1)
  1. TEGSEDI [Suspect]
     Active Substance: INOTERSEN SODIUM
     Indication: HEREDITARY NEUROPATHIC AMYLOIDOSIS
     Dosage: UNK
     Route: 058
     Dates: start: 20190919, end: 20190919

REACTIONS (6)
  - Fibrin D dimer increased [Unknown]
  - Myalgia [Recovered/Resolved]
  - Pyrexia [Recovered/Resolved]
  - Procalcitonin increased [Unknown]
  - Adverse drug reaction [Unknown]
  - Musculoskeletal stiffness [Recovered/Resolved]

NARRATIVE: CASE EVENT DATE: 201909
